FAERS Safety Report 4874325-X (Version None)
Quarter: 2006Q1

REPORT INFORMATION
  Report Type: 
  Country: None (occurrence: None)
  Receive Date: 20060106
  Receipt Date: 20051228
  Transmission Date: 20060701
  Serious: Yes (Death, Hospitalization)
  Sender: FDA-Public Use
  Company Number: FR-SANOFI-SYNTHELABO-A02200503445

PATIENT
  Age: 60 Year
  Sex: Female

DRUGS (3)
  1. STILNOX [Suspect]
     Indication: SLEEP DISORDER
     Dosage: UNK
     Route: 048
  2. PRIMPERAN INJ [Concomitant]
     Indication: VOMITING
     Dosage: UNK
     Route: 048
  3. PARACETAMOL [Concomitant]
     Indication: SKIN DISORDER
     Dosage: UNK
     Route: 048

REACTIONS (4)
  - CONFUSIONAL STATE [None]
  - DRUG LEVEL ABOVE THERAPEUTIC [None]
  - OVERDOSE [None]
  - PERITONITIS [None]
